FAERS Safety Report 7001177-4 (Version None)
Quarter: 2010Q3

REPORT INFORMATION
  Report Type: 
  Country: None (occurrence: None)
  Receive Date: 20100920
  Receipt Date: 20070618
  Transmission Date: 20110219
  Serious: Yes (Other)
  Sender: FDA-Public Use
  Company Number: US-ASTRAZENECA-2006UW21258

PATIENT
  Age: 22214 Day
  Sex: Female
  Weight: 106.6 kg

DRUGS (17)
  1. SEROQUEL [Suspect]
     Indication: SLEEP DISORDER
     Route: 048
     Dates: start: 20050413, end: 20071106
  2. SEROQUEL [Suspect]
     Route: 048
     Dates: end: 20060301
  3. ABILIFY [Concomitant]
     Dates: start: 20060215
  4. LEXAPRO [Concomitant]
     Route: 048
     Dates: start: 20050413
  5. BENADRYL [Concomitant]
     Indication: ANXIETY
     Dates: start: 20020101
  6. BENADRYL [Concomitant]
     Indication: SLEEP DISORDER
     Dates: start: 20020101
  7. INDOCIN [Concomitant]
     Indication: LIMB DISCOMFORT
     Dosage: 200 - 100 MG TAPERING
     Dates: start: 20011224
  8. INDOCIN [Concomitant]
     Indication: GOUT
     Dosage: 200 - 100 MG TAPERING
     Dates: start: 20011224
  9. LORTAB [Concomitant]
     Indication: PAIN
     Dosage: STRENGTH - 20 - 60 MG
     Dates: start: 20011224
  10. TRAZODONE HCL [Concomitant]
     Indication: INSOMNIA
     Dates: start: 20020901, end: 20050413
  11. WELLBUTRIN XL [Concomitant]
     Indication: MENTAL DISORDER
     Dates: start: 20020901, end: 20050413
  12. FLUOXETINE [Concomitant]
     Dates: start: 20040801
  13. HYDROCHLOROTHIAZIDE [Concomitant]
     Indication: BLOOD PRESSURE
     Dosage: STRENGTH - 37.5 MG AND 25 MG
     Dates: start: 19940914
  14. POTASSIUM CHLORIDE [Concomitant]
     Dates: start: 20020901
  15. GEODON [Concomitant]
     Dosage: STRENGTH - 160 MG WITH SUPPER
     Dates: start: 20070717
  16. LISINOPRIL [Concomitant]
     Dates: start: 20061213
  17. ALPRAZOLAM [Concomitant]
     Indication: MENTAL DISORDER
     Dates: start: 20040701

REACTIONS (1)
  - TARDIVE DYSKINESIA [None]
